FAERS Safety Report 13598490 (Version 1)
Quarter: 2017Q2

REPORT INFORMATION
  Report Type: Spontaneous
  Country: US (occurrence: US)
  Receive Date: 20170531
  Receipt Date: 20170531
  Transmission Date: 20170830
  Serious: Yes (Other)
  Sender: FDA-Public Use
  Company Number: None

PATIENT
  Age: 56 Year
  Sex: Male
  Weight: 106.8 kg

DRUGS (5)
  1. HEPARIN SODIUM INJECTION [Suspect]
     Active Substance: HEPARIN SODIUM
     Indication: ANGIOPLASTY
     Dosage: ?          OTHER FREQUENCY:ONCE;?
     Route: 040
     Dates: start: 20170524, end: 20170524
  2. CEFAZOLIN [Concomitant]
     Active Substance: CEFAZOLIN
  3. NACL [Concomitant]
     Active Substance: SODIUM CHLORIDE
  4. LIDOCAINE. [Concomitant]
     Active Substance: LIDOCAINE
  5. MIDAZOLAM [Concomitant]
     Active Substance: MIDAZOLAM HYDROCHLORIDE

REACTIONS (2)
  - Product measured potency issue [None]
  - Prescribed overdose [None]

NARRATIVE: CASE EVENT DATE: 20170524
